FAERS Safety Report 9944494 (Version 1)
Quarter: 2014Q1

REPORT INFORMATION
  Report Type: Report from Study
  Country: US (occurrence: US)
  Receive Date: 20140303
  Receipt Date: 20140303
  Transmission Date: 20141002
  Serious: No
  Sender: FDA-Public Use
  Company Number: US-ABBVIE-13P-163-1051481-00

PATIENT
  Age: 67 Year
  Sex: Male

DRUGS (8)
  1. HUMIRA [Suspect]
     Indication: COLITIS ULCERATIVE
     Dates: start: 20130103
  2. HUMIRA [Suspect]
     Dates: start: 20130212
  3. ZOCOR [Concomitant]
     Indication: BLOOD CHOLESTEROL
     Dosage: 40 MG DAILY
  4. FINASTERIDE [Concomitant]
     Indication: BENIGN PROSTATIC HYPERPLASIA
     Dosage: 5 MG DAILY
  5. TERAZOSIN [Concomitant]
     Indication: BENIGN PROSTATIC HYPERPLASIA
     Dosage: 5 MG DAILY
  6. IMITREX [Concomitant]
     Indication: MIGRAINE
  7. ADVAIR 250 [Concomitant]
     Indication: ASTHMA
  8. PREDNISONE [Concomitant]
     Indication: COLITIS ULCERATIVE
     Dosage: TAPER 40 MG DAILY FOR 1 WEEK TO CONTINUE FOR THE NEXT 4 WEEKS

REACTIONS (3)
  - Pyrexia [Not Recovered/Not Resolved]
  - Injection site pain [Not Recovered/Not Resolved]
  - Influenza [Not Recovered/Not Resolved]
